FAERS Safety Report 11547720 (Version 1)
Quarter: 2015Q3

REPORT INFORMATION
  Report Type: Spontaneous
  Country: US (occurrence: US)
  Receive Date: 20150903
  Receipt Date: 20150903
  Transmission Date: 20151125
  Serious: No
  Sender: FDA-Public Use
  Company Number: US-ELI_LILLY_AND_COMPANY-US201104005526

PATIENT
  Age: 56 Year
  Sex: Female

DRUGS (1)
  1. HUMALOG [Suspect]
     Active Substance: INSULIN LISPRO
     Dosage: UNK
     Dates: end: 201003

REACTIONS (3)
  - Malaise [Unknown]
  - Blood glucose decreased [Unknown]
  - Tremor [Unknown]
